FAERS Safety Report 12125562 (Version 1)
Quarter: 2016Q1

REPORT INFORMATION
  Report Type: Spontaneous
  Country: NO (occurrence: NO)
  Receive Date: 20160229
  Receipt Date: 20160229
  Transmission Date: 20160526
  Serious: Yes (Other)
  Sender: FDA-Public Use
  Company Number: NO-ORION CORPORATION ORION PHARMA-16_00001584

PATIENT
  Sex: Male

DRUGS (5)
  1. STALEVO [Suspect]
     Active Substance: CARBIDOPA\ENTACAPONE\LEVODOPA
     Indication: PARKINSONISM
     Dosage: STRENGTH: 100/25/200; 7-9 TABLETS/DAY
     Route: 048
     Dates: start: 2011, end: 2015
  2. NOVORAPID [Concomitant]
     Active Substance: INSULIN ASPART
     Route: 065
  3. REQUIP [Suspect]
     Active Substance: ROPINIROLE HYDROCHLORIDE
     Indication: PARKINSONISM
     Route: 048
     Dates: start: 2011, end: 201511
  4. ISOPHANE INSULIN [Concomitant]
     Active Substance: INSULIN NOS
     Route: 051
  5. AZILECT [Suspect]
     Active Substance: RASAGILINE MESYLATE
     Indication: PARKINSONISM
     Route: 048
     Dates: start: 2011

REACTIONS (3)
  - Abnormal behaviour [Unknown]
  - Impulse-control disorder [Unknown]
  - Economic problem [Unknown]

NARRATIVE: CASE EVENT DATE: 2012
